FAERS Safety Report 14795437 (Version 1)
Quarter: 2018Q2

REPORT INFORMATION
  Report Type: Spontaneous
  Country: US (occurrence: US)
  Receive Date: 20180423
  Receipt Date: 20180423
  Transmission Date: 20180711
  Serious: No
  Sender: FDA-Public Use
  Company Number: US-BIOGEN-2018BI00556098

PATIENT
  Sex: Female

DRUGS (1)
  1. TECFIDERA [Suspect]
     Active Substance: DIMETHYL FUMARATE
     Indication: MULTIPLE SCLEROSIS
     Dosage: TAKE ONE 120 MG CAPSULE TWICE A DAY FOR 7 DAYS, THEN TAKE ONE 240 MG CAPSULE TWICE A DAY FOR 23 DAYS
     Route: 048
     Dates: start: 20180324

REACTIONS (5)
  - Paraesthesia [Not Recovered/Not Resolved]
  - Dizziness [Not Recovered/Not Resolved]
  - Abdominal discomfort [Unknown]
  - Pain in extremity [Not Recovered/Not Resolved]
  - Hot flush [Unknown]
